APPROVED DRUG PRODUCT: TRETINOIN
Active Ingredient: TRETINOIN
Strength: 0.05%
Dosage Form/Route: GEL;TOPICAL
Application: A207955 | Product #001 | TE Code: AB
Applicant: MYLAN PHARMACEUTICALS INC
Approved: Aug 13, 2015 | RLD: No | RS: No | Type: RX